FAERS Safety Report 25967374 (Version 1)
Quarter: 2025Q4

REPORT INFORMATION
  Report Type: Spontaneous
  Country: US (occurrence: US)
  Receive Date: 20251028
  Receipt Date: 20251028
  Transmission Date: 20260117
  Serious: No
  Sender: ABBVIE
  Company Number: US-ABBVIE-6512420

PATIENT

DRUGS (6)
  1. BOTOX [Suspect]
     Active Substance: ONABOTULINUMTOXINA
     Indication: Migraine
     Dosage: TIME INTERVAL: AS NECESSARY: BOTOX THERAPEUTIC 100 UNITS ;4 VIALS, 1 VIAL, 2 VIALS / 7 VIALS IN T...
     Route: 065
  2. BOTOX [Suspect]
     Active Substance: ONABOTULINUMTOXINA
     Indication: Migraine
     Dosage: TIME INTERVAL: AS NECESSARY: BOTOX THERAPEUTIC 100 UNITS ;4 VIALS, 1 VIAL, 2 VIALS / 7 VIALS IN T...
     Route: 065
  3. BOTOX [Suspect]
     Active Substance: ONABOTULINUMTOXINA
     Indication: Migraine
     Dosage: TIME INTERVAL: AS NECESSARY: BOTOX THERAPEUTIC 100 UNITS ;4 VIALS, 1 VIAL, 2 VIALS / 7 VIALS IN T...
     Route: 065
  4. BOTOX [Suspect]
     Active Substance: ONABOTULINUMTOXINA
     Indication: Migraine
     Dosage: TIME INTERVAL: AS NECESSARY: BOTOX THERAPEUTIC 200 UNITS ;1 VIAL, 1 VIAL, 26 VIALS / 28 VIALS IN ...
     Route: 065
  5. BOTOX [Suspect]
     Active Substance: ONABOTULINUMTOXINA
     Indication: Migraine
     Dosage: TIME INTERVAL: AS NECESSARY: BOTOX THERAPEUTIC 200 UNITS ;1 VIAL, 1 VIAL, 26 VIALS / 28 VIALS IN ...
     Route: 065
  6. BOTOX [Suspect]
     Active Substance: ONABOTULINUMTOXINA
     Indication: Migraine
     Dosage: TIME INTERVAL: AS NECESSARY: BOTOX THERAPEUTIC 200 UNITS ;1 VIAL, 1 VIAL, 26 VIALS / 28 VIALS IN ...
     Route: 065

REACTIONS (2)
  - Product storage error [Unknown]
  - Product storage error [Unknown]

NARRATIVE: CASE EVENT DATE: 20251014
